FAERS Safety Report 18779134 (Version 2)
Quarter: 2021Q1

REPORT INFORMATION
  Report Type: Report from Study
  Country: None (occurrence: US)
  Receive Date: 20210125
  Receipt Date: 20210310
  Transmission Date: 20210419
  Serious: Yes (Other)
  Sender: FDA-Public Use
  Company Number: US-ABBVIE-21K-163-3741794-00

PATIENT
  Age: 68 Year
  Sex: Female

DRUGS (2)
  1. HUMIRA [Suspect]
     Active Substance: ADALIMUMAB
     Indication: PRODUCT USED FOR UNKNOWN INDICATION
     Route: 058
     Dates: start: 20190919, end: 2020
  2. HUMIRA [Suspect]
     Active Substance: ADALIMUMAB
     Route: 058
     Dates: end: 20210301

REACTIONS (6)
  - Fatigue [Unknown]
  - Sinusitis [Not Recovered/Not Resolved]
  - Cyst [Unknown]
  - Urinary tract infection [Unknown]
  - Drug ineffective [Unknown]
  - Cystitis [Not Recovered/Not Resolved]

NARRATIVE: CASE EVENT DATE: 20210226
